FAERS Safety Report 7830466-6 (Version None)
Quarter: 2011Q4

REPORT INFORMATION
  Report Type: 
  Country: None (occurrence: None)
  Receive Date: 20111019
  Receipt Date: 20111013
  Transmission Date: 20120403
  Serious: Yes (Life-Threatening, Congenital Anomaly)
  Sender: FDA-Public Use
  Company Number: 2009JP001535

PATIENT
  Age: 30 Year
  Sex: Female
  Weight: 50.0318 kg

DRUGS (17)
  1. DEPAS (ETIZOLAM0 [Concomitant]
  2. ALFAROL (ALFACALCIDOL) [Concomitant]
  3. PREDNISOLONE [Concomitant]
  4. ONEALFA (ALFACALCIDOL) [Concomitant]
  5. FAMOTIDINE [Concomitant]
  6. LOSARTAN POTASSIUM [Concomitant]
  7. TACROLIMUS [Suspect]
     Indication: LUPUS NEPHRITIS
     Dosage: 3 MG,  /D, ORAL
     Route: 048
     Dates: start: 20080520
  8. ATELEC (CILNIDIPINE) [Concomitant]
  9. COMELIAN (DILAZEP DIHYDROCHLORIDE) [Concomitant]
  10. LASIX [Concomitant]
  11. FUNGIZONE [Concomitant]
  12. AMLODIPINE BESYLATE [Concomitant]
  13. SELBEX (TEPRENONE) [Concomitant]
  14. BLOPRESS (CANDESARTAN CILEXETIL) [Concomitant]
  15. MICARDIS [Concomitant]
  16. ASPIRIN [Concomitant]
  17. MARZULENE-S (AZULENE, LEVOGLUTAMIDE, SODIUM GUALENATE) [Concomitant]

REACTIONS (8)
  - UPPER RESPIRATORY TRACT INFLAMMATION [None]
  - PLATELET COUNT DECREASED [None]
  - CAESAREAN SECTION [None]
  - HEPATIC ENZYME INCREASED [None]
  - PHARYNGITIS [None]
  - HAEMOLYTIC ANAEMIA [None]
  - HELLP SYNDROME [None]
  - MATERNAL EXPOSURE DURING PREGNANCY [None]
